FAERS Safety Report 10519057 (Version 1)
Quarter: 2014Q4

REPORT INFORMATION
  Report Type: Spontaneous
  Country: US (occurrence: None)
  Receive Date: 20141014
  Receipt Date: 20141014
  Transmission Date: 20150528
  Serious: Yes (Disabling)
  Sender: FDA-Public Use
  Company Number: None

PATIENT
  Age: 50 Year
  Sex: Male

DRUGS (2)
  1. HYDROCODONE [Suspect]
     Active Substance: HYDROCODONE
     Indication: ARTHRITIS
  2. HYDROCODONE [Suspect]
     Active Substance: HYDROCODONE
     Indication: MULTIPLE INJURIES

REACTIONS (1)
  - Economic problem [None]

NARRATIVE: CASE EVENT DATE: 20141008
